FAERS Safety Report 12396469 (Version 1)
Quarter: 2016Q2

REPORT INFORMATION
  Report Type: Spontaneous
  Country: FR (occurrence: FR)
  Receive Date: 20160524
  Receipt Date: 20160524
  Transmission Date: 20160815
  Serious: Yes (Hospitalization)
  Sender: FDA-Public Use
  Company Number: FR-ROCHE-1754806

PATIENT
  Age: 93 Year
  Sex: Male

DRUGS (7)
  1. LEVOTHYROX [Concomitant]
     Active Substance: LEVOTHYROXINE
     Route: 048
  2. LASILIX [Concomitant]
     Active Substance: FUROSEMIDE
     Route: 048
  3. ROCEPHINE [Suspect]
     Active Substance: CEFTRIAXONE SODIUM
     Indication: BRONCHITIS
     Route: 065
     Dates: start: 20160209, end: 20160214
  4. JANUVIA [Suspect]
     Active Substance: SITAGLIPTIN PHOSPHATE
     Indication: PRODUCT USED FOR UNKNOWN INDICATION
     Route: 048
     Dates: start: 20160212, end: 20160215
  5. HEMIGOXINE NATIVELLE [Concomitant]
     Active Substance: DIGOXIN
     Route: 048
  6. PREVISCAN (FRANCE) [Concomitant]
     Active Substance: FLUINDIONE
     Route: 048
  7. AMLODIPINE [Concomitant]
     Active Substance: AMLODIPINE BESYLATE
     Route: 048

REACTIONS (2)
  - Hypersensitivity [Recovered/Resolved]
  - Condition aggravated [Recovered/Resolved]

NARRATIVE: CASE EVENT DATE: 20160210
